FAERS Safety Report 8841857 (Version 1)
Quarter: 2012Q4

REPORT INFORMATION
  Report Type: Spontaneous
  Country: US (occurrence: None)
  Receive Date: 20121015
  Receipt Date: 20121015
  Transmission Date: 20130627
  Serious: No
  Sender: FDA-Public Use
  Company Number: None

PATIENT
  Age: 77 Year
  Sex: Female
  Weight: 63.5 kg

DRUGS (2)
  1. SIMVASTATIN [Suspect]
     Dosage: 40 mg 1 a day
  2. LISINOPRIL [Suspect]

REACTIONS (2)
  - Swollen tongue [None]
  - Dysphagia [None]
